FAERS Safety Report 4491923-6 (Version None)
Quarter: 2004Q4

REPORT INFORMATION
  Report Type: 
  Country: None (occurrence: None)
  Receive Date: 20041029
  Receipt Date: 20041029
  Transmission Date: 20050328
  Serious: No
  Sender: FDA-Public Use
  Company Number: None

PATIENT
  Age: 62 Year
  Sex: Female

DRUGS (1)
  1. BENAZEPRIL HCL [Suspect]
     Dosage: QD
     Dates: start: 20040511, end: 20040912

REACTIONS (3)
  - DRY MOUTH [None]
  - EYE PRURITUS [None]
  - SWELLING FACE [None]
